FAERS Safety Report 7053039-4 (Version None)
Quarter: 2010Q4

REPORT INFORMATION
  Report Type: 
  Country: None (occurrence: None)
  Receive Date: 20101020
  Receipt Date: 20101011
  Transmission Date: 20110411
  Serious: Yes (Hospitalization, Other)
  Sender: FDA-Public Use
  Company Number: US-ELI_LILLY_AND_COMPANY-US201001004386

PATIENT
  Sex: Female
  Weight: 113.38 kg

DRUGS (29)
  1. BYETTA [Suspect]
     Dosage: UNK, UNKNOWN
     Route: 065
     Dates: start: 20070501, end: 20080601
  2. CATAPRES                                /UNK/ [Concomitant]
     Indication: HYPERTENSION
     Dosage: 0.1 MG, 2/D
  3. NEURONTIN [Concomitant]
     Indication: PROPHYLAXIS
     Dosage: UNK, UNKNOWN
  4. AMBIEN [Concomitant]
     Indication: INSOMNIA
     Dosage: 10 MG, UNKNOWN
  5. XANAX [Concomitant]
     Indication: ANTIDEPRESSANT THERAPY
     Dosage: UNK, UNKNOWN
  6. LORTAB [Concomitant]
     Indication: PAIN
     Dosage: UNK, UNKNOWN
  7. PROTONIX [Concomitant]
     Indication: GASTROOESOPHAGEAL REFLUX DISEASE
     Dosage: 40 MG, DAILY (1/D)
  8. PROTONIX [Concomitant]
     Dosage: 40 MG, DAILY (1/D)
     Route: 042
     Dates: start: 20080501
  9. VENLAFAXINE [Concomitant]
     Indication: DEPRESSION
     Dosage: UNK, UNKNOWN
  10. SINEQUAN [Concomitant]
     Dosage: 300 MG, 2/D
  11. LEVAQUIN [Concomitant]
     Dosage: 500 MG, UNKNOWN
  12. MEPERIDINE HCL [Concomitant]
     Dosage: 50 MG, UNKNOWN
  13. AMOXICILLIN AND CLAVULANATE POTASSIUM [Concomitant]
     Dosage: UNK, UNKNOWN
  14. OXYCODONE AND ACETAMINOPHEN [Concomitant]
     Dosage: UNK, UNKNOWN
  15. METHYLPREDNISOLONE ACETATE [Concomitant]
     Dosage: 4 MG, UNKNOWN
  16. LISINOPRIL [Concomitant]
     Dosage: 10 MG, UNKNOWN
  17. ALLEGRA-D                          /01367401/ [Concomitant]
     Dosage: UNK, UNKNOWN
  18. BENADRYL [Concomitant]
     Dosage: UNK, UNKNOWN
  19. CELLCEPT [Concomitant]
     Dosage: 1000 MG, 2/D
  20. PROGRAF [Concomitant]
     Dosage: 0.1 MG, 2/D
  21. HYDROMORPHONE HCL [Concomitant]
     Dosage: UNK, UNKNOWN
  22. HYDROMORPHONE HCL [Concomitant]
     Dosage: 1 MG, AS NEEDED
     Route: 042
     Dates: start: 20080501
  23. HYDROMORPHONE HCL [Concomitant]
     Dosage: 2 MG, AS NEEDED
     Dates: start: 20080501
  24. PREDNISONE [Concomitant]
     Dosage: 10 MG, DAILY (1/D)
  25. STADOL [Concomitant]
     Dosage: UNK, UNKNOWN
  26. REGLAN [Concomitant]
     Dosage: UNK, UNKNOWN
  27. MORPHINE SULFATE [Concomitant]
     Dosage: UNK, UNKNOWN
  28. NU-IRON [Concomitant]
     Dosage: UNK, 2/D
  29. COLCHICINE [Concomitant]
     Dosage: 0.6 MG, AS NEEDED

REACTIONS (9)
  - ABDOMINAL PAIN [None]
  - CHOLELITHIASIS [None]
  - ENTERITIS [None]
  - GALLBLADDER DISORDER [None]
  - GASTRITIS [None]
  - PANCREATITIS [None]
  - PANCREATITIS ACUTE [None]
  - PANCREATITIS CHRONIC [None]
  - RENAL FAILURE ACUTE [None]
